FAERS Safety Report 14732481 (Version 1)
Quarter: 2018Q2

REPORT INFORMATION
  Report Type: Report from Study
  Country: CN (occurrence: CN)
  Receive Date: 20180409
  Receipt Date: 20180409
  Transmission Date: 20180711
  Serious: Yes (Death, Hospitalization)
  Sender: FDA-Public Use
  Company Number: CN-ROCHE-2099249

PATIENT

DRUGS (10)
  1. MIZORIBINE [Suspect]
     Active Substance: MIZORIBINE
     Indication: PROPHYLAXIS AGAINST TRANSPLANT REJECTION
     Route: 065
  2. SIROLIMUS. [Suspect]
     Active Substance: SIROLIMUS
     Indication: PROPHYLAXIS AGAINST TRANSPLANT REJECTION
     Route: 065
  3. TACROLIMUS. [Suspect]
     Active Substance: TACROLIMUS
     Indication: PROPHYLAXIS AGAINST TRANSPLANT REJECTION
     Route: 065
  4. MYCOPHENOLATE MOFETIL. [Suspect]
     Active Substance: MYCOPHENOLATE MOFETIL
     Indication: PROPHYLAXIS AGAINST TRANSPLANT REJECTION
     Route: 065
  5. METHYLPREDNISOLONE. [Suspect]
     Active Substance: METHYLPREDNISOLONE
     Indication: PROPHYLAXIS AGAINST TRANSPLANT REJECTION
     Route: 065
  6. CYCLOSPORINE A [Suspect]
     Active Substance: CYCLOSPORINE
     Indication: PROPHYLAXIS AGAINST TRANSPLANT REJECTION
     Dosage: 3-5 MG/KG/D. AFTER CONVERTING, WHOLE BLOOD TROUGH CONCENTRATION OF CSA WAS MEASURED WEEKLY, AND THE
     Route: 048
  7. MYCOPHENOLATE SODIUM [Suspect]
     Active Substance: MYCOPHENOLATE SODIUM
     Indication: PROPHYLAXIS AGAINST TRANSPLANT REJECTION
     Route: 048
  8. ACARBOSE. [Concomitant]
     Active Substance: ACARBOSE
  9. INSULIN [Concomitant]
     Active Substance: INSULIN NOS
  10. METFORMIN [Concomitant]
     Active Substance: METFORMIN HYDROCHLORIDE

REACTIONS (6)
  - Cardiovascular disorder [Fatal]
  - Hepatic failure [Fatal]
  - Bladder cancer [Fatal]
  - Craniocerebral injury [Fatal]
  - Infection [Unknown]
  - Pneumonia [Fatal]
